FAERS Safety Report 6426205-6 (Version None)
Quarter: 2009Q4

REPORT INFORMATION
  Report Type: 
  Country: None (occurrence: None)
  Receive Date: 20091104
  Receipt Date: 20091030
  Transmission Date: 20100525
  Serious: Yes (Other)
  Sender: FDA-Public Use
  Company Number: GB-JNJFOC-20091100254

PATIENT
  Age: 17 Year
  Sex: Male
  Weight: 60 kg

DRUGS (4)
  1. HALOPERIDOL DECANOATE [Suspect]
     Indication: SEDATION
     Route: 030
     Dates: start: 20080218
  2. CLOZARIL [Interacting]
     Route: 048
  3. CLOZARIL [Interacting]
     Indication: SCHIZOPHRENIA
     Route: 048
  4. CITALOPRAM [Concomitant]
     Route: 048

REACTIONS (6)
  - BLOOD PRESSURE ABNORMAL [None]
  - DRUG INTERACTION [None]
  - EXTRAPYRAMIDAL DISORDER [None]
  - MEAN CELL VOLUME INCREASED [None]
  - NEUROLEPTIC MALIGNANT SYNDROME [None]
  - URINARY INCONTINENCE [None]
